FAERS Safety Report 5781551-4 (Version None)
Quarter: 2008Q2

REPORT INFORMATION
  Report Type: 
  Country: None (occurrence: None)
  Receive Date: 20080623
  Receipt Date: 20070504
  Transmission Date: 20081010
  Serious: No
  Sender: FDA-Public Use
  Company Number: US-ASTRAZENECA-2007UW09614

PATIENT
  Age: 43 Year
  Sex: Male
  Weight: 72.6 kg

DRUGS (3)
  1. RHINOCORT [Suspect]
     Indication: NASAL CONGESTION
     Dosage: 1 SPRAY IN EACH NOSTRIL
     Route: 045
     Dates: start: 20070301
  2. PRILOSEC [Concomitant]
     Route: 048
  3. LEXAPRO [Concomitant]

REACTIONS (1)
  - MIGRAINE [None]
